FAERS Safety Report 7800862-1 (Version None)
Quarter: 2011Q4

REPORT INFORMATION
  Report Type: 
  Country: None (occurrence: None)
  Receive Date: 20111006
  Receipt Date: 20110729
  Transmission Date: 20120403
  Serious: Yes (Other)
  Sender: FDA-Public Use
  Company Number: US-AMGEN-USASP2010000901

PATIENT
  Sex: Male

DRUGS (2)
  1. PREDNISONE [Concomitant]
     Indication: IDIOPATHIC THROMBOCYTOPENIC PURPURA
  2. NPLATE [Suspect]
     Indication: IDIOPATHIC THROMBOCYTOPENIC PURPURA
     Dosage: UNK
     Dates: start: 20100811, end: 20101006

REACTIONS (5)
  - WHITE BLOOD CELL COUNT INCREASED [None]
  - HAEMATOCHEZIA [None]
  - PLATELET MORPHOLOGY ABNORMAL [None]
  - CONTUSION [None]
  - DRUG INEFFECTIVE [None]
